FAERS Safety Report 8302153 (Version 4)
Quarter: 2014Q1

REPORT INFORMATION
  Report Type: Spontaneous
  Country: US (occurrence: None)
  Receive Date: 20111122
  Receipt Date: 20130107
  Transmission Date: 20141002
  Serious: Yes (Other)
  Sender: FDA-Public Use
  Company Number: PHEH2011US02254

PATIENT
  Age: 45 Year
  Sex: Female

DRUGS (2)
  1. GILENYA [Suspect]
     Indication: MULTIPLE SCLEROSIS
     Dosage: 0.5 MG, QD, ORAL
     Route: 048
     Dates: start: 20110809
  2. SYNTHROID (LEVOTHYROXINE SODIUM) [Concomitant]

REACTIONS (9)
  - Blood iron decreased [None]
  - Heart rate increased [None]
  - Hypoaesthesia [None]
  - Vision blurred [None]
  - Paraesthesia [None]
  - Blood pressure increased [None]
  - Muscle tightness [None]
  - Head discomfort [None]
  - Alopecia [None]
